FAERS Safety Report 15919163 (Version 1)
Quarter: 2019Q1

REPORT INFORMATION
  Report Type: Spontaneous
  Country: BE (occurrence: BE)
  Receive Date: 20190205
  Receipt Date: 20190205
  Transmission Date: 20190417
  Serious: Yes (Other)
  Sender: FDA-Public Use
  Company Number: BE-MYLANLABS-2019M1008924

PATIENT
  Age: 76 Year
  Sex: Male
  Weight: 80 kg

DRUGS (4)
  1. MONTELUKAST [Interacting]
     Active Substance: MONTELUKAST SODIUM
     Indication: ASTHMA
     Dosage: ^S AVONDS INNEMEN
     Route: 048
     Dates: start: 20180430
  2. AMLODIPINE [Suspect]
     Active Substance: AMLODIPINE BESYLATE
     Indication: HYPERTENSION
     Route: 048
  3. MOMETASONE [Concomitant]
     Active Substance: MOMETASONE
     Indication: SINUSITIS
     Dosage: 2 DOSAGE FORM, QD
     Route: 045
  4. MICARDIS PLUS [Concomitant]
     Active Substance: HYDROCHLOROTHIAZIDE\TELMISARTAN
     Indication: HYPERTENSION
     Dosage: MICARDIS 80/12.5

REACTIONS (4)
  - Hypotension [Recovered/Resolved]
  - Dizziness [Recovered/Resolved]
  - Drug interaction [Recovered/Resolved]
  - Headache [Recovered/Resolved]
